FAERS Safety Report 19736608 (Version 1)
Quarter: 2021Q3

REPORT INFORMATION
  Report Type: Spontaneous
  Country: CN (occurrence: CN)
  Receive Date: 20210824
  Receipt Date: 20210824
  Transmission Date: 20211014
  Serious: Yes (Hospitalization, Other)
  Sender: FDA-Public Use
  Company Number: CN-SUN PHARMACEUTICAL INDUSTRIES LTD-2021R1-308813

PATIENT
  Age: 25 Year
  Sex: Female

DRUGS (1)
  1. ACETAMINOPHEN. [Suspect]
     Active Substance: ACETAMINOPHEN
     Indication: PRODUCT USED FOR UNKNOWN INDICATION
     Dosage: UNK (}20 TABLETS)
     Route: 065

REACTIONS (6)
  - Nausea [Unknown]
  - Drug level increased [Unknown]
  - Intentional overdose [Unknown]
  - Vomiting [Unknown]
  - Toxicity to various agents [Unknown]
  - Dizziness [Unknown]
